FAERS Safety Report 19123524 (Version 3)
Quarter: 2021Q2

REPORT INFORMATION
  Report Type: Spontaneous
  Country: FI (occurrence: FI)
  Receive Date: 20210412
  Receipt Date: 20210504
  Transmission Date: 20210717
  Serious: Yes (Other)
  Sender: FDA-Public Use
  Company Number: FI-JNJFOC-20210322690

PATIENT
  Age: 25 Year
  Sex: Male

DRUGS (9)
  1. SPRAVATO [Suspect]
     Active Substance: ESKETAMINE
     Indication: DEPRESSION
     Dates: start: 20210302, end: 20210304
  2. LAMOTRIGINE ORION [Concomitant]
     Dosage: DOSE 25 MG 1+0+2
  3. KETIPINOR [Concomitant]
     Active Substance: QUETIAPINE FUMARATE
     Indication: PRODUCT USED FOR UNKNOWN INDICATION
     Dosage: DOSE 50 MG 0+0+2
  4. TRUXAL [CHLORPROTHIXENE] [Concomitant]
     Active Substance: CHLORPROTHIXENE
     Dosage: DOSE 25 MG 1 X 1?2
  5. VENLAFAXINE [Concomitant]
     Active Substance: VENLAFAXINE HYDROCHLORIDE
     Indication: PRODUCT USED FOR UNKNOWN INDICATION
     Dosage: DOSE 150 MG 1+0+0
  6. PROPRAL [Concomitant]
  7. BURANA [Concomitant]
     Active Substance: IBUPROFEN
     Dosage: DOSE 400 MG 1X3
  8. SILDENAFIL RATIOPHARM [Concomitant]
     Active Substance: SILDENAFIL
     Dosage: DOSE 50 MG, 0.5 ?1X1
  9. MELATONIN VITABALANS [Concomitant]
     Dosage: DOSE 5 MG 0+0+1

REACTIONS (6)
  - Feeling drunk [Unknown]
  - Intentional self-injury [Unknown]
  - Dissociation [Recovered/Resolved]
  - Hypoaesthesia oral [Unknown]
  - Fatigue [Unknown]
  - Blood pressure increased [Recovered/Resolved]

NARRATIVE: CASE EVENT DATE: 20210413
